FAERS Safety Report 8317962-2 (Version None)
Quarter: 2012Q2

REPORT INFORMATION
  Report Type: 
  Country: None (occurrence: None)
  Receive Date: 20120427
  Receipt Date: 20120420
  Transmission Date: 20120825
  Serious: Yes (Hospitalization)
  Sender: FDA-Public Use
  Company Number: FR-SANOFI-AVENTIS-2012SA027941

PATIENT
  Age: 78 Year
  Sex: Male

DRUGS (6)
  1. ATARAX [Suspect]
     Route: 048
     Dates: start: 20110901
  2. REMINYL /UNK/ [Suspect]
     Route: 048
     Dates: start: 20110101
  3. ZOLPIDEM TARTRATE [Suspect]
     Dosage: LONG-TERM THERAPY.
     Route: 048
  4. HALDOL [Suspect]
     Dosage: 2 MG/ML.
     Route: 048
     Dates: start: 20110701
  5. ALPRAZOLAM [Suspect]
     Dosage: LONG-TERM THERAPY.
     Route: 048
  6. ESCITALOPRAM [Suspect]
     Dosage: LONG-TERM THERAPY.
     Route: 048

REACTIONS (2)
  - DUODENITIS [None]
  - OESOPHAGEAL STENOSIS [None]
